FAERS Safety Report 24459291 (Version 1)
Quarter: 2024Q4

REPORT INFORMATION
  Report Type: Report from Study
  Country: CA (occurrence: CA)
  Receive Date: 20241018
  Receipt Date: 20241018
  Transmission Date: 20250114
  Serious: Yes (Death)
  Sender: CSL BEHRING
  Company Number: CA-BEH-2024182230

PATIENT
  Age: 77 Year
  Sex: Female
  Weight: 57 kg

DRUGS (3)
  1. HIZENTRA [Suspect]
     Active Substance: HUMAN IMMUNOGLOBULIN G
     Indication: Secondary immunodeficiency
     Dosage: PRODUCT STRENGTH: 8G, QW
     Route: 065
     Dates: start: 20221012, end: 202405
  2. FILGRASTIM [Concomitant]
     Active Substance: FILGRASTIM
     Indication: Chemotherapy
  3. FILGRASTIM [Concomitant]
     Active Substance: FILGRASTIM
     Indication: Chemotherapy

REACTIONS (2)
  - Death [Fatal]
  - Therapy cessation [Unknown]

NARRATIVE: CASE EVENT DATE: 20240501
